FAERS Safety Report 7557048-8 (Version None)
Quarter: 2011Q2

REPORT INFORMATION
  Report Type: 
  Country: None (occurrence: None)
  Receive Date: 20110620
  Receipt Date: 20110606
  Transmission Date: 20111010
  Serious: Yes (Other)
  Sender: FDA-Public Use
  Company Number: PHHY2011BR50565

PATIENT
  Sex: Female

DRUGS (3)
  1. ALENDRONATE SODIUM [Concomitant]
     Indication: OSTEOPOROSIS
     Dosage: 1 TABLET WEEKLY
     Route: 048
     Dates: start: 20100101
  2. DIOVAN [Suspect]
     Indication: HYPERTENSION
     Dosage: 160 MG, DAILY
     Route: 048
     Dates: start: 20090101
  3. CALCIUM WITH VITAMIN D [Concomitant]
     Dosage: 1 DF (CALCIUM/VITAMIN D)
     Route: 048
     Dates: start: 20100101

REACTIONS (4)
  - CEREBRAL ISCHAEMIA [None]
  - CONVULSION [None]
  - BLOOD CHOLESTEROL INCREASED [None]
  - ARRHYTHMIA [None]
